FAERS Safety Report 9768269 (Version 1)
Quarter: 2013Q4

REPORT INFORMATION
  Report Type: Spontaneous
  Country: CL (occurrence: CL)
  Receive Date: 20131217
  Receipt Date: 20131217
  Transmission Date: 20140711
  Serious: Yes (Other)
  Sender: FDA-Public Use
  Company Number: CL-PFIZER INC-2013360990

PATIENT
  Age: 79 Year
  Sex: Male

DRUGS (2)
  1. XALATAN [Suspect]
     Indication: GLAUCOMA
     Dosage: 1 DROP PER EYE DAILY
     Route: 047
     Dates: start: 1993
  2. COSOPT [Concomitant]
     Dosage: UNK

REACTIONS (1)
  - Lenticular opacities [Not Recovered/Not Resolved]
